FAERS Safety Report 8517214-1 (Version None)
Quarter: 2012Q3

REPORT INFORMATION
  Report Type: 
  Country: None (occurrence: None)
  Receive Date: 20120718
  Receipt Date: 20120712
  Transmission Date: 20120928
  Serious: Yes (Hospitalization, Other)
  Sender: FDA-Public Use
  Company Number: US-SHIRE-ALL1-2012-03283

PATIENT
  Sex: Male
  Weight: 81.179 kg

DRUGS (6)
  1. LIALDA [Suspect]
     Indication: COLITIS ULCERATIVE
     Dosage: 1.2 G, 2X/DAY:BID
     Route: 048
     Dates: start: 20120601, end: 20120621
  2. CETIRIZINE DI-HCL [Concomitant]
     Indication: HYPERSENSITIVITY
     Dosage: UNK, 1X/DAY:QD
     Route: 048
  3. FLUTICASONE PROPIONATE [Concomitant]
     Indication: HYPERSENSITIVITY
     Dosage: UNK, 1X/DAY:QD
     Route: 045
     Dates: start: 19920101
  4. LIALDA [Suspect]
     Dosage: 1.2 G, 4X/DAY:QID
     Route: 048
     Dates: start: 20120622, end: 20120601
  5. LIALDA [Suspect]
     Dosage: 1.2 G, 2X/DAY:BID
     Route: 048
     Dates: start: 20120601, end: 20120701
  6. ADVAIR HFA [Concomitant]
     Indication: ASTHMA
     Dosage: 250/50 ?G, 1X/DAY:QD
     Route: 055
     Dates: start: 20020101

REACTIONS (6)
  - CHEST PAIN [None]
  - HAEMATOCHEZIA [None]
  - MYOCARDIAL INFARCTION [None]
  - FALL [None]
  - DRUG INEFFECTIVE [None]
  - DRUG PRESCRIBING ERROR [None]
